FAERS Safety Report 9562430 (Version 1)
Quarter: 2013Q3

REPORT INFORMATION
  Report Type: Spontaneous
  Country: US (occurrence: US)
  Receive Date: 20130927
  Receipt Date: 20130927
  Transmission Date: 20140515
  Serious: Yes (Hospitalization)
  Sender: FDA-Public Use
  Company Number: US-GLAXOSMITHKLINE-A1042555A

PATIENT
  Age: 65 Year
  Sex: Female

DRUGS (5)
  1. ADVAIR [Suspect]
     Indication: CHRONIC OBSTRUCTIVE PULMONARY DISEASE
     Dosage: 1PUFF TWICE PER DAY
     Route: 055
  2. VENTOLIN [Suspect]
     Indication: BRONCHOSPASM
     Dosage: 1PUFF AS REQUIRED
     Route: 055
  3. ASA LOW DOSE [Concomitant]
  4. MULTIVITAMIN [Concomitant]
  5. HYDROCODONE [Concomitant]

REACTIONS (8)
  - Hospitalisation [Unknown]
  - Fall [Unknown]
  - Limb crushing injury [Unknown]
  - Limb crushing injury [Unknown]
  - Joint injury [Unknown]
  - Upper limb fracture [Unknown]
  - Crush injury [Unknown]
  - Tibia fracture [Unknown]
